FAERS Safety Report 23164728 (Version 2)
Quarter: 2023Q4

REPORT INFORMATION
  Report Type: Spontaneous
  Country: GB (occurrence: GB)
  Receive Date: 20231109
  Receipt Date: 20231123
  Transmission Date: 20240109
  Serious: Yes (Hospitalization, Disabling, Other)
  Sender: FDA-Public Use
  Company Number: None

PATIENT
  Age: 56 Year
  Sex: Female
  Weight: 198 kg

DRUGS (2)
  1. ATORVASTATIN [Suspect]
     Active Substance: ATORVASTATIN
     Indication: Hypercholesterolaemia
     Dosage: 20MG;
     Dates: start: 20230407, end: 20231022
  2. LANTUS [Concomitant]
     Active Substance: INSULIN GLARGINE
     Indication: Diabetes mellitus
     Dates: start: 20220701

REACTIONS (3)
  - Muscle fatigue [Unknown]
  - Pain in extremity [Unknown]
  - Inappropriate schedule of product administration [Recovered/Resolved with Sequelae]

NARRATIVE: CASE EVENT DATE: 20231020
